FAERS Safety Report 20542484 (Version 11)
Quarter: 2022Q4

REPORT INFORMATION
  Report Type: Report from Study
  Country: LB (occurrence: LB)
  Receive Date: 20220302
  Receipt Date: 20221205
  Transmission Date: 20230113
  Serious: Yes (Hospitalization, Other)
  Sender: FDA-Public Use
  Company Number: LB-002147023-NVSC2022LB043044

PATIENT

DRUGS (19)
  1. RUXOLITINIB [Suspect]
     Active Substance: RUXOLITINIB
     Indication: Myelofibrosis
     Dosage: 20 MG, BID (20 MG X 1TAB BID)
     Route: 048
     Dates: start: 20200421, end: 202111
  2. RUXOLITINIB [Suspect]
     Active Substance: RUXOLITINIB
     Dosage: 20 MG, BID (20 MG X 1TAB BID)
     Route: 048
     Dates: start: 202112, end: 202201
  3. RUXOLITINIB [Suspect]
     Active Substance: RUXOLITINIB
     Dosage: 15 MG, BID (15 MG 1 TAB BID)
     Route: 048
     Dates: start: 202201, end: 202203
  4. RUXOLITINIB [Suspect]
     Active Substance: RUXOLITINIB
     Dosage: 5 MG, BID (5 MG X 1 TAB BID)
     Route: 048
     Dates: start: 20220221, end: 202203
  5. RUXOLITINIB [Suspect]
     Active Substance: RUXOLITINIB
     Dosage: 15 MG, BID (15 MG X 1 TAB BID)
     Route: 048
     Dates: start: 202204, end: 202208
  6. RUXOLITINIB [Suspect]
     Active Substance: RUXOLITINIB
     Dosage: 15 MG, QD (15 MG 1 TAB OD, WITH MABTERA ONCE PER WEEK IV IN THE HOSPITAL)
     Route: 065
     Dates: start: 20220506
  7. RUXOLITINIB [Suspect]
     Active Substance: RUXOLITINIB
     Dosage: 15 MG, QD (15 MG 1 TAB OD, WITH MABTERA ONCE PER WEEK IV IN THE HOSPITAL)
     Route: 065
     Dates: start: 20220526
  8. RUXOLITINIB [Suspect]
     Active Substance: RUXOLITINIB
     Dosage: 20 MG, BID (20 MG X 1 TAB BID)
     Route: 048
     Dates: start: 202208
  9. RABEPRAZOLE SODIUM [Concomitant]
     Active Substance: RABEPRAZOLE SODIUM
     Indication: Product used for unknown indication
     Dosage: UNK
     Route: 065
  10. FEXOFENADINE [Concomitant]
     Active Substance: FEXOFENADINE HYDROCHLORIDE
     Indication: Product used for unknown indication
     Dosage: UNK
     Route: 065
  11. IRBESARTAN [Concomitant]
     Active Substance: IRBESARTAN
     Indication: Product used for unknown indication
     Dosage: UNK
     Route: 065
  12. FEBUXOSTAT [Concomitant]
     Active Substance: FEBUXOSTAT
     Indication: Product used for unknown indication
     Dosage: UNK
     Route: 065
  13. IVABRADINE [Concomitant]
     Active Substance: IVABRADINE
     Indication: Product used for unknown indication
     Dosage: UNK
     Route: 065
  14. LASIX [Concomitant]
     Active Substance: FUROSEMIDE
     Indication: Product used for unknown indication
     Dosage: UNK
     Route: 065
  15. MARVEL [Concomitant]
     Indication: Product used for unknown indication
     Dosage: UNK
     Route: 065
  16. CORTISONE [Concomitant]
     Active Substance: CORTISONE
     Indication: Product used for unknown indication
     Dosage: UNK
     Route: 065
  17. FOLIC ACID [Concomitant]
     Active Substance: FOLIC ACID
     Indication: Product used for unknown indication
     Dosage: UNK
     Route: 065
  18. PANADOL [Concomitant]
     Active Substance: ACETAMINOPHEN
     Indication: Product used for unknown indication
     Dosage: UNK
     Route: 065
  19. AMLODIPINE BESYLATE [Concomitant]
     Active Substance: AMLODIPINE BESYLATE
     Indication: Product used for unknown indication
     Dosage: UNK (5)
     Route: 065

REACTIONS (21)
  - Anaemia [Recovered/Resolved]
  - Anaemia [Recovered/Resolved]
  - Anaemia [Recovered/Resolved]
  - Anaemia [Recovered/Resolved]
  - Anaemia [Recovering/Resolving]
  - Arrhythmia [Recovered/Resolved]
  - Arrhythmia [Recovered/Resolved]
  - Pneumonia bacterial [Unknown]
  - Bone pain [Not Recovered/Not Resolved]
  - Incorrect dose administered [Unknown]
  - Ecchymosis [Not Recovered/Not Resolved]
  - Pyrexia [Recovered/Resolved]
  - Pyrexia [Recovered/Resolved]
  - Gastric infection [Recovered/Resolved]
  - Product availability issue [Unknown]
  - Pneumonia [Recovering/Resolving]
  - Respiratory arrest [Recovered/Resolved]
  - Urinary tract infection [Recovered/Resolved]
  - Electrolyte imbalance [Recovered/Resolved]
  - Vomiting [Recovered/Resolved]
  - Gait disturbance [Not Recovered/Not Resolved]

NARRATIVE: CASE EVENT DATE: 20220219
